FAERS Safety Report 25223138 (Version 1)
Quarter: 2025Q2

REPORT INFORMATION
  Report Type: Spontaneous
  Country: US (occurrence: US)
  Receive Date: 20250422
  Receipt Date: 20250422
  Transmission Date: 20250717
  Serious: Yes (Other)
  Sender: EPIC PHARM
  Company Number: US-EPICPHARMA-US-2025EPCLIT00449

PATIENT
  Age: 55 Year
  Sex: Female

DRUGS (4)
  1. BUSPIRONE [Suspect]
     Active Substance: BUSPIRONE HYDROCHLORIDE
     Indication: Anxiety
     Route: 065
  2. LISINOPRIL [Concomitant]
     Active Substance: LISINOPRIL
     Indication: Hypertension
     Route: 065
  3. CLONIDINE [Concomitant]
     Active Substance: CLONIDINE
     Indication: Hyperlipidaemia
     Route: 065
  4. METOPROLOL [Concomitant]
     Active Substance: METOPROLOL
     Indication: Hypertension
     Route: 065

REACTIONS (2)
  - Hypertensive urgency [Recovered/Resolved]
  - Secondary hypertension [Recovered/Resolved]
